FAERS Safety Report 16997145 (Version 1)
Quarter: 2019Q4

REPORT INFORMATION
  Report Type: Spontaneous
  Country: US (occurrence: US)
  Receive Date: 20191101
  Receipt Date: 20191101
  Transmission Date: 20200122
  Serious: Yes (Hospitalization, Disabling)
  Sender: FDA-Public Use
  Company Number: None

PATIENT
  Sex: Male
  Weight: 81 kg

DRUGS (4)
  1. KRATOM [Suspect]
     Active Substance: HERBALS\MITRAGYNINE
     Indication: SUBSTANCE USE
     Dosage: ?          OTHER FREQUENCY:AFTER WORK;?
     Route: 048
  2. DLPA [Concomitant]
  3. VICTIM C [Concomitant]
  4. VICTIM B12 [Concomitant]

REACTIONS (4)
  - Tachyphrenia [None]
  - Overdose [None]
  - Withdrawal syndrome [None]
  - Drug dependence [None]
